FAERS Safety Report 5274611-8 (Version None)
Quarter: 2007Q1

REPORT INFORMATION
  Report Type: 
  Country: None (occurrence: None)
  Receive Date: 20070320
  Receipt Date: 20070308
  Transmission Date: 20070707
  Serious: Yes (Death)
  Sender: FDA-Public Use
  Company Number: KADN20070039

PATIENT
  Age: 14 Month
  Sex: Male
  Weight: 11.7935 kg

DRUGS (5)
  1. KADIAN [Suspect]
     Dates: end: 20050201
  2. ***HYDROMORPHONE UNK UNKNOWN [Suspect]
     Dates: end: 20050201
  3. ***HYDROCODONE UNK UNKNOWN [Suspect]
     Dates: end: 20050201
  4. ***HEROIN UNK NA [Suspect]
     Dates: end: 20050201
  5. OLANZAPINE [Suspect]
     Dates: end: 20050201

REACTIONS (14)
  - BLADDER DILATATION [None]
  - CARDIAC ARREST [None]
  - CONTUSION [None]
  - DRUG SCREEN POSITIVE [None]
  - HUMERUS FRACTURE [None]
  - PETECHIAE [None]
  - PULMONARY CONGESTION [None]
  - PULMONARY HAEMORRHAGE [None]
  - PULMONARY OEDEMA [None]
  - RESPIRATORY ARREST [None]
  - SPLEEN DISORDER [None]
  - THERAPEUTIC AGENT TOXICITY [None]
  - VICTIM OF CHILD ABUSE [None]
  - VISCERAL CONGESTION [None]
